FAERS Safety Report 17938523 (Version 1)
Quarter: 2020Q2

REPORT INFORMATION
  Report Type: Spontaneous
  Country: CN (occurrence: CN)
  Receive Date: 20200624
  Receipt Date: 20200624
  Transmission Date: 20200714
  Serious: Yes (Hospitalization)
  Sender: FDA-Public Use
  Company Number: CN-009507513-2006CHN007005

PATIENT
  Age: 61 Year
  Sex: Male
  Weight: 74 kg

DRUGS (2)
  1. INVANZ [Suspect]
     Active Substance: ERTAPENEM SODIUM
     Indication: LUMBAR SPINAL STENOSIS
     Dosage: 1 GRAM, QD, ABOUT 50 DROPS/MIN
     Route: 041
     Dates: start: 20200519, end: 20200519
  2. SODIUM CHLORIDE. [Concomitant]
     Active Substance: SODIUM CHLORIDE
     Indication: LUMBAR SPINAL STENOSIS
     Dosage: 250 MILLILITER
     Route: 041
     Dates: start: 20200519

REACTIONS (5)
  - Chills [Recovering/Resolving]
  - Pallor [Recovering/Resolving]
  - Vomiting [Recovering/Resolving]
  - Pyrexia [Recovering/Resolving]
  - Adverse event [Unknown]

NARRATIVE: CASE EVENT DATE: 2020
